FAERS Safety Report 5730850 (Version 3)
Quarter: 2012Q4

REPORT INFORMATION
  Report Type: 
  Country: US (occurrence: US)
  Receive Date: 20050207
  Receipt Date: 20121210
  Transmission Date: 20130627
  Serious: Yes (Hospitalization)
  Sender: FDA-Public Use
  Company Number: US-JNJFOC-20050200207

PATIENT
  Age: 67 Year
  Sex: Male

DRUGS (10)
  1. TYLENOL [Suspect]
     Route: 048
  2. TYLENOL [Suspect]
     Indication: HEAD INJURY
     Dosage: ^large^ amount
     Route: 048
     Dates: start: 200201, end: 200205
  3. GOODY^S POWDER [Suspect]
     Indication: HEAD INJURY
     Dosage: ^like candy^
     Route: 048
     Dates: end: 200205
  4. BC HEADACHE POWDER [Suspect]
     Indication: HEADACHE
     Dosage: q 4 hours for several years, oral
     Route: 048
  5. PERCOCET [Suspect]
     Indication: HEAD INJURY
     Dosage: 3-4 tablets per day
  6. PERCOCET [Suspect]
     Indication: HEAD INJURY
     Dosage: as many as 8-10 daily
     Dates: start: 1995
  7. ASPIRIN [Suspect]
     Indication: PRODUCT USED FOR UNKNOWN INDICATION
     Route: 048
  8. IBUPROFEN [Suspect]
     Indication: PRODUCT USED FOR UNKNOWN INDICATION
     Dosage: semi-regular basis
     Dates: end: 200204
  9. ZOLPIDEM TARTRATE [Concomitant]
  10. AMBIEN [Concomitant]

REACTIONS (7)
  - Renal failure acute [Not Recovered/Not Resolved]
  - Intentional drug misuse [Unknown]
  - Rhabdomyolysis [Unknown]
  - Bleeding time abnormal [Unknown]
  - Cardiac failure congestive [Unknown]
  - Gastritis haemorrhagic [Unknown]
  - Hypertension [Unknown]
